FAERS Safety Report 16285262 (Version 1)
Quarter: 2019Q2

REPORT INFORMATION
  Report Type: Spontaneous
  Country: US (occurrence: US)
  Receive Date: 20190506
  Receipt Date: 20190506
  Transmission Date: 20190711
  Serious: Yes (Death)
  Sender: FDA-Public Use
  Company Number: None

PATIENT
  Age: 51 Year
  Sex: Female

DRUGS (2)
  1. VENCLEXTA [Concomitant]
     Active Substance: VENETOCLAX
  2. TACROLIMUS. [Suspect]
     Active Substance: TACROLIMUS
     Indication: SPLEEN PROCEDURAL COMPLICATION
     Route: 048
     Dates: start: 20190221

REACTIONS (1)
  - Death [None]

NARRATIVE: CASE EVENT DATE: 20190413
